FAERS Safety Report 8742405 (Version 7)
Quarter: 2013Q2

REPORT INFORMATION
  Report Type: Spontaneous
  Country: BR (occurrence: BR)
  Receive Date: 20120824
  Receipt Date: 20130607
  Transmission Date: 20140414
  Serious: Yes (Hospitalization, Other)
  Sender: FDA-Public Use
  Company Number: BR-PFIZER INC-2012196959

PATIENT
  Age: 66 Year
  Sex: Male
  Weight: 71 kg

DRUGS (5)
  1. SUTENT [Suspect]
     Indication: RENAL CANCER
     Dosage: 50 MG, 4 WEEKS ON AND 2 OFF
     Route: 048
     Dates: start: 20120528, end: 20120811
  2. TYLENOL [Concomitant]
     Indication: PAIN
  3. VITAMIN E [Concomitant]
     Indication: INFLUENZA
  4. PARACETAMOL [Concomitant]
     Indication: PAIN
     Dosage: UNK
  5. PLASIL [Concomitant]
     Indication: NAUSEA
     Dosage: UNK

REACTIONS (11)
  - Intestinal perforation [Recovering/Resolving]
  - Immunodeficiency [Unknown]
  - Weight decreased [Recovering/Resolving]
  - Yellow skin [Not Recovered/Not Resolved]
  - Visual impairment [Not Recovered/Not Resolved]
  - Skin exfoliation [Unknown]
  - Arthralgia [Not Recovered/Not Resolved]
  - Dysgeusia [Not Recovered/Not Resolved]
  - Palmar-plantar erythrodysaesthesia syndrome [Not Recovered/Not Resolved]
  - Disease progression [Not Recovered/Not Resolved]
  - Renal cancer [Not Recovered/Not Resolved]
